FAERS Safety Report 12496770 (Version 1)
Quarter: 2016Q2

REPORT INFORMATION
  Report Type: Spontaneous
  Country: PT (occurrence: PT)
  Receive Date: 20160624
  Receipt Date: 20160624
  Transmission Date: 20160815
  Serious: Yes (Disabling)
  Sender: FDA-Public Use
  Company Number: PT-009507513-1606PRT000096

PATIENT
  Age: 77 Year
  Sex: Female
  Weight: 45 kg

DRUGS (8)
  1. FOSAVANCE [Suspect]
     Active Substance: ALENDRONATE SODIUM\CHOLECALCIFEROL
     Indication: OSTEOPOROSIS
     Dosage: PATIENT HAD BEEN RECEIVING THERAPY FOR SOME YEARS
     Route: 048
  2. LASIX [Concomitant]
     Active Substance: FUROSEMIDE
     Dosage: 20 MG, QD; HAS BEEN RECEIVING THERAPY FOR SEVERAL YEARS
     Route: 048
  3. SERENAL (OXAZEPAM) [Concomitant]
     Dosage: 15 MG, QD; HAS BEEN RECEIVING THERAPY FOR OVER 5 YEARS
     Route: 048
  4. XYZAL [Concomitant]
     Active Substance: LEVOCETIRIZINE DIHYDROCHLORIDE
     Dosage: 5 MG, QD; HAS BEEN RECEIVING THERAPY FOR SEVERAL YEARS
     Route: 048
  5. CANDESARTAN [Concomitant]
     Active Substance: CANDESARTAN
     Dosage: HAS BEEN RECEIVING THERAPY FOR SEVERAL YEARS
  6. PANTOPRAZOLE [Concomitant]
     Active Substance: PANTOPRAZOLE SODIUM
     Dosage: HAS BEEN RECEIVING THERAPY FOR SEVERAL YEARS
  7. MAPROTILINE [Concomitant]
     Active Substance: MAPROTILINE
     Dosage: 12.5 MG, QD; HAS BEEN RECEIVING THERAPY FOR 3 YEARS
     Route: 048
  8. BRISOMAX [Concomitant]
     Active Substance: FLUTICASONE PROPIONATE\SALMETEROL XINAFOATE
     Dosage: HAS BEEN RECEIVING THERAPY FOR SEVERAL YEARS
     Route: 055

REACTIONS (2)
  - Cachexia [Unknown]
  - Bone formation increased [Unknown]

NARRATIVE: CASE EVENT DATE: 201505
